FAERS Safety Report 22541395 (Version 1)
Quarter: 2023Q2

REPORT INFORMATION
  Report Type: Spontaneous
  Country: US (occurrence: None)
  Receive Date: 20230608
  Receipt Date: 20230608
  Transmission Date: 20230721
  Serious: No
  Sender: FDA-Public Use
  Company Number: None

PATIENT
  Age: 52 Year
  Sex: Female

DRUGS (1)
  1. AJOVY [Suspect]
     Active Substance: FREMANEZUMAB-VFRM

REACTIONS (6)
  - Injection site reaction [None]
  - Injection site urticaria [None]
  - Injection site warmth [None]
  - Injection site swelling [None]
  - Sensitive skin [None]
  - Drug intolerance [None]
